FAERS Safety Report 8297309-0 (Version None)
Quarter: 2012Q1

REPORT INFORMATION
  Report Type: 
  Country: None (occurrence: None)
  Receive Date: 20120322
  Receipt Date: 20120124
  Transmission Date: 20120608
  Serious: Yes (Death, Hospitalization)
  Sender: FDA-Public Use
  Company Number: UTC-014929

PATIENT
  Age: 87 Year
  Sex: Female
  Weight: 46.8 kg

DRUGS (5)
  1. COUMADIN [Concomitant]
  2. CALCIUM CHANNEL BLOCKERS (CALCIUM CHANNEL BLOCKERS) [Concomitant]
  3. TYVASO [Suspect]
     Indication: PULMONARY ARTERIAL HYPERTENSION
     Dosage: 144 MCG (36 MCG, 4 IN 1 D), INHALATION
     Route: 055
     Dates: start: 20110601
  4. BETA BLOCKERS (BETA BLOCKING AGENTS) [Concomitant]
  5. DIURETICS (DIURETICS) [Concomitant]

REACTIONS (5)
  - RENAL FAILURE [None]
  - CARDIO-RESPIRATORY ARREST [None]
  - LETHARGY [None]
  - MYOCARDIAL INFARCTION [None]
  - CARBON DIOXIDE INCREASED [None]
